FAERS Safety Report 14877170 (Version 1)
Quarter: 2018Q2

REPORT INFORMATION
  Report Type: Spontaneous
  Country: US (occurrence: US)
  Receive Date: 20180510
  Receipt Date: 20180510
  Transmission Date: 20180711
  Serious: Yes (Life-Threatening)
  Sender: FDA-Public Use
  Company Number: US-ANIPHARMA-2018-US-007027

PATIENT
  Age: 53 Year
  Sex: Male

DRUGS (1)
  1. OXACILLIN [Suspect]
     Active Substance: OXACILLIN SODIUM

REACTIONS (2)
  - Hypokalaemia [Unknown]
  - Hypomagnesaemia [Unknown]
